FAERS Safety Report 7059548-6 (Version None)
Quarter: 2010Q4

REPORT INFORMATION
  Report Type: 
  Country: None (occurrence: None)
  Receive Date: 20101025
  Receipt Date: 20101012
  Transmission Date: 20110411
  Serious: Yes (Hospitalization, Other)
  Sender: FDA-Public Use
  Company Number: PHHY2010FR69047

PATIENT
  Sex: Male

DRUGS (3)
  1. RASILEZ [Suspect]
     Indication: HYPERTENSION
     Dosage: 1 DF, QD
     Route: 048
     Dates: end: 20100624
  2. XENETIX [Suspect]
     Dosage: 350 MG/ML
     Route: 042
     Dates: start: 20100623
  3. BISOPROLOL [Concomitant]
     Indication: HYPERTENSION

REACTIONS (7)
  - BLOOD CREATININE INCREASED [None]
  - DIALYSIS [None]
  - DRUG INTERACTION [None]
  - HYPERURICAEMIA [None]
  - PROSTHESIS IMPLANTATION [None]
  - RENAL FAILURE ACUTE [None]
  - RENAL TUBULAR NECROSIS [None]
